FAERS Safety Report 8575951-7 (Version None)
Quarter: 2012Q3

REPORT INFORMATION
  Report Type: 
  Country: None (occurrence: None)
  Receive Date: 20120807
  Receipt Date: 20120728
  Transmission Date: 20120928
  Serious: Yes (Hospitalization)
  Sender: FDA-Public Use
  Company Number: US-BAYER-2011-123166

PATIENT
  Age: 29 Year
  Sex: Female
  Weight: 65.76 kg

DRUGS (3)
  1. YAZ [Suspect]
  2. YAZ [Suspect]
     Indication: PREMENSTRUAL SYNDROME
     Dosage: 1 PILL DAILY
     Route: 048
     Dates: start: 20100701, end: 20101001
  3. LEXAPRO [Concomitant]
     Dosage: 20 MG DAILY

REACTIONS (8)
  - PULMONARY EMBOLISM [None]
  - PULMONARY INFARCTION [None]
  - CEREBROVASCULAR ACCIDENT [None]
  - HYPOAESTHESIA [None]
  - NEUROPATHY PERIPHERAL [None]
  - PLEURAL EFFUSION [None]
  - PAIN [None]
  - MENTAL DISORDER [None]
